FAERS Safety Report 21992359 (Version 1)
Quarter: 2023Q1

REPORT INFORMATION
  Report Type: Spontaneous
  Country: CN (occurrence: CN)
  Receive Date: 20230215
  Receipt Date: 20230215
  Transmission Date: 20230417
  Serious: Yes (Other)
  Sender: FDA-Public Use
  Company Number: None

PATIENT
  Age: 68 Year
  Sex: Male
  Weight: 70 kg

DRUGS (1)
  1. PLASMA-LYTE A [Suspect]
     Active Substance: MAGNESIUM CHLORIDE\POTASSIUM CHLORIDE\SODIUM ACETATE\SODIUM CHLORIDE\SODIUM GLUCONATE
     Indication: Adjuvant therapy
     Dosage: 500 MILLILITERS (ML), ONCE DAILY (DOSAGE FORM - INJECTION)
     Route: 041
     Dates: start: 20221129, end: 20221129

REACTIONS (4)
  - Altered state of consciousness [Recovering/Resolving]
  - Panic attack [Recovering/Resolving]
  - Headache [Recovering/Resolving]
  - Palpitations [Recovered/Resolved]

NARRATIVE: CASE EVENT DATE: 20221129
